FAERS Safety Report 8222551-4 (Version None)
Quarter: 2012Q1

REPORT INFORMATION
  Report Type: 
  Country: None (occurrence: None)
  Receive Date: 20120320
  Receipt Date: 20120313
  Transmission Date: 20120608
  Serious: Yes (Other)
  Sender: FDA-Public Use
  Company Number: US-US-EMD SERONO, INC.-7119147

PATIENT
  Sex: Female

DRUGS (2)
  1. REBIF [Suspect]
     Indication: PRODUCT USED FOR UNKNOWN INDICATION
     Route: 058
     Dates: start: 20071111, end: 20090302
  2. REBIF [Suspect]
     Dates: start: 20090806, end: 20110401

REACTIONS (4)
  - CERVIX CARCINOMA [None]
  - INJECTION SITE ERYTHEMA [None]
  - PYREXIA [None]
  - INJECTION SITE PAIN [None]
